FAERS Safety Report 10173605 (Version 2)
Quarter: 2014Q2

REPORT INFORMATION
  Report Type: Spontaneous
  Country: US (occurrence: None)
  Receive Date: 20140416
  Receipt Date: 20140604
  Transmission Date: 20141212
  Serious: No
  Sender: FDA-Public Use
  Company Number: 163-POMAL-13122135

PATIENT
  Age: 77 Year
  Sex: Female

DRUGS (5)
  1. POMALYST [Suspect]
     Indication: PLASMA CELL MYELOMA
     Dosage: 4 MG, 21 IN 28 D
     Dates: start: 201305, end: 2013
  2. ZOMETA (ZOLEDRONIC ACID) [Concomitant]
  3. ASA (ACETYLSALICYLIC ACID) [Concomitant]
  4. XANAX (ALPRAZOLAM) [Concomitant]
  5. VICODIN [Concomitant]

REACTIONS (1)
  - Solar lentigo [None]
